FAERS Safety Report 5390371-4 (Version None)
Quarter: 2007Q3

REPORT INFORMATION
  Report Type: 
  Country: None (occurrence: None)
  Receive Date: 20070718
  Receipt Date: 20070706
  Transmission Date: 20080115
  Serious: Yes (Disabling)
  Sender: FDA-Public Use
  Company Number: AU-SANOFI-SYNTHELABO-A01200702337

PATIENT
  Sex: Male

DRUGS (5)
  1. MIRTAZAPINE [Concomitant]
     Indication: DEPRESSION
     Dosage: UNK
     Route: 048
     Dates: start: 20060101
  2. VENLAFAXINE HCL [Concomitant]
     Indication: DRUG USE FOR UNKNOWN INDICATION
     Dosage: 221 MG
     Route: 048
     Dates: start: 20060801
  3. CITALOPRAM [Concomitant]
     Indication: DRUG USE FOR UNKNOWN INDICATION
     Dosage: 40 MG
     Route: 048
     Dates: start: 20060101
  4. ZOLPIDEM TARTRATE [Suspect]
     Indication: DRUG DEPENDENCE
     Dosage: 6 TABLETS DAILY OR MORE
     Route: 048
     Dates: start: 20060101
  5. SEROQUEL [Concomitant]
     Indication: DRUG USE FOR UNKNOWN INDICATION
     Dosage: 100 MG
     Route: 065
     Dates: start: 20060801

REACTIONS (5)
  - CONFUSIONAL STATE [None]
  - DELIRIUM [None]
  - DEPENDENCE [None]
  - DISORIENTATION [None]
  - INTENTIONAL OVERDOSE [None]
